FAERS Safety Report 8163889-9 (Version None)
Quarter: 2012Q1

REPORT INFORMATION
  Report Type: 
  Country: None (occurrence: None)
  Receive Date: 20120224
  Receipt Date: 20120214
  Transmission Date: 20120608
  Serious: No
  Sender: FDA-Public Use
  Company Number: US-BAYER-2012-015834

PATIENT
  Sex: Female

DRUGS (4)
  1. ALEVE (CAPLET) [Suspect]
     Indication: BACK PAIN
     Dosage: 2 DF, PRN
     Route: 048
     Dates: start: 20020101, end: 20020101
  2. ALEVE (CAPLET) [Suspect]
     Indication: MUSCULOSKELETAL PAIN
  3. ALEVE (CAPLET) [Suspect]
     Indication: SINUS HEADACHE
  4. ALEVE (CAPLET) [Suspect]
     Indication: EAR PAIN

REACTIONS (1)
  - NO ADVERSE EVENT [None]
